FAERS Safety Report 8961714 (Version 3)
Quarter: 2012Q4

REPORT INFORMATION
  Report Type: 
  Country: JP (occurrence: JP)
  Receive Date: 20121213
  Receipt Date: 20121226
  Transmission Date: 20130627
  Serious: Yes (Other)
  Sender: FDA-Public Use
  Company Number: JP-PFIZER INC-2012255389

PATIENT
  Age: 77 Year
  Sex: Female
  Weight: 60.6 kg

DRUGS (4)
  1. INLYTA [Suspect]
     Indication: METASTASES TO PANCREAS
     Dosage: 5 mg, 2x/day
     Route: 048
     Dates: start: 20121004, end: 20121018
  2. INLYTA [Suspect]
     Dosage: 3 mg, 2x/day
     Dates: start: 20121108, end: 20121118
  3. INLYTA [Suspect]
     Dosage: 2 mg, 2x/day
     Dates: start: 20121119
  4. SUTENT [Concomitant]
     Indication: METASTASES TO PANCREAS
     Dosage: UNK
     Dates: start: 20120203, end: 20121002

REACTIONS (5)
  - Bone marrow failure [Recovered/Resolved]
  - Blood pressure increased [Recovering/Resolving]
  - Diarrhoea [Recovering/Resolving]
  - Nausea [Recovering/Resolving]
  - Cough [Recovered/Resolved]
